FAERS Safety Report 7435836-6 (Version None)
Quarter: 2011Q2

REPORT INFORMATION
  Report Type: 
  Country: None (occurrence: None)
  Receive Date: 20110425
  Receipt Date: 20110413
  Transmission Date: 20111010
  Serious: Yes (Hospitalization)
  Sender: FDA-Public Use
  Company Number: JP-ELI_LILLY_AND_COMPANY-JP201103007845

PATIENT
  Age: 36 Year
  Sex: Male

DRUGS (4)
  1. ZYPREXA [Suspect]
     Indication: SCHIZOPHRENIA
     Dosage: 20 MG, QD
     Route: 048
     Dates: start: 20100722, end: 20110401
  2. DEPROMEL [Concomitant]
     Indication: DEPRESSIVE SYMPTOM
     Dosage: 150 MG, QD
     Route: 048
     Dates: end: 20110407
  3. ROZEREM [Concomitant]
     Indication: INSOMNIA
     Dosage: 8 MG, QD
  4. DEPAKENE [Concomitant]
     Indication: MANIA
     Dosage: 400 MG, QD
     Route: 048

REACTIONS (3)
  - INSULINOMA [None]
  - PSYCHIATRIC SYMPTOM [None]
  - HYPOGLYCAEMIA [None]
